FAERS Safety Report 7224128-6 (Version None)
Quarter: 2011Q1

REPORT INFORMATION
  Report Type: 
  Country: None (occurrence: None)
  Receive Date: 20110113
  Receipt Date: 20090212
  Transmission Date: 20110831
  Serious: No
  Sender: FDA-Public Use
  Company Number: 2009BI005375

PATIENT
  Age: 25 Year
  Sex: Female

DRUGS (2)
  1. TYSABRI [Suspect]
     Indication: MULTIPLE SCLEROSIS
     Route: 042
     Dates: start: 20080321
  2. TYSABRI [Suspect]
     Route: 042
     Dates: start: 20071214, end: 20071214

REACTIONS (6)
  - FATIGUE [None]
  - INFUSION SITE PAIN [None]
  - INJECTION SITE PAIN [None]
  - POOR VENOUS ACCESS [None]
  - HEADACHE [None]
  - ABDOMINAL DISCOMFORT [None]
